FAERS Safety Report 10025647 (Version 1)
Quarter: 2014Q1

REPORT INFORMATION
  Report Type: Spontaneous
  Country: US (occurrence: None)
  Receive Date: 20140314
  Receipt Date: 20140314
  Transmission Date: 20141002
  Serious: Yes (Hospitalization)
  Sender: FDA-Public Use
  Company Number: QSC-2014-0133

PATIENT
  Age: 55 Year
  Sex: Male
  Weight: 93.1 kg

DRUGS (5)
  1. H.P. ACTHAR GEL (ADRENOCORTICOTROPIC HORMONE) GEL FOR INJECTION, 80U/ML [Suspect]
     Indication: PROTEINURIA
     Route: 058
     Dates: start: 20131119
  2. METOLAZONE (METOLAZONE) [Concomitant]
  3. LASIX (FUROSEMIDE) [Concomitant]
  4. METFORMIN (METFORMIN) [Concomitant]
  5. LISINOPRIL (LISINOPRIL) [Concomitant]

REACTIONS (9)
  - Renal failure acute [None]
  - Acute prerenal failure [None]
  - Syncope [None]
  - Hypokalaemia [None]
  - Dehydration [None]
  - Fatigue [None]
  - Decreased appetite [None]
  - Dysgeusia [None]
  - Renal failure acute [None]
